FAERS Safety Report 5211905-6 (Version None)
Quarter: 2006Q4

REPORT INFORMATION
  Report Type: 
  Country: None (occurrence: None)
  Receive Date: 20061101
  Receipt Date: 20060808
  Transmission Date: 20070319
  Serious: No
  Sender: FDA-Public Use
  Company Number: 2006PV019108

PATIENT
  Age: 68 Year
  Sex: Female
  Weight: 105.2345 kg

DRUGS (2)
  1. SYMLIN [Suspect]
     Indication: DIABETES MELLITUS
     Dosage: 120 MCG; TID; SC
     Route: 058
     Dates: start: 20060601, end: 20060808
  2. SYMLIN [Suspect]
     Indication: WEIGHT DECREASED
     Dosage: 120 MCG; TID; SC
     Route: 058
     Dates: start: 20060601, end: 20060808

REACTIONS (1)
  - RASH PRURITIC [None]
